FAERS Safety Report 21943400 (Version 1)
Quarter: 2023Q1

REPORT INFORMATION
  Report Type: Spontaneous
  Country: US (occurrence: US)
  Receive Date: 20230202
  Receipt Date: 20230202
  Transmission Date: 20230417
  Serious: No
  Sender: FDA-Public Use
  Company Number: US-002147023-NVSC2023US020087

PATIENT
  Sex: Female

DRUGS (1)
  1. TOBRAMYCIN AND DEXAMETHASONE [Suspect]
     Active Substance: DEXAMETHASONE\TOBRAMYCIN
     Indication: Eye infection
     Dosage: UNK (0.3+0.1%)
     Route: 065
     Dates: start: 20211021, end: 20220101

REACTIONS (2)
  - Eyelid scar [Unknown]
  - Injury [Unknown]
